FAERS Safety Report 21189892 (Version 1)
Quarter: 2022Q3

REPORT INFORMATION
  Report Type: Spontaneous
  Country: US (occurrence: None)
  Receive Date: 20220808
  Receipt Date: 20220808
  Transmission Date: 20221026
  Serious: No
  Sender: FDA-Public Use
  Company Number: None

PATIENT
  Age: 60 Year
  Sex: Male
  Weight: 73.8 kg

DRUGS (28)
  1. DIAZEPAM [Suspect]
     Active Substance: DIAZEPAM
     Indication: Muscle spasms
     Dosage: OTHER QUANTITY : 1 SUPPOSITORY(IES);?FREQUENCY : TWICE A DAY;?
     Route: 054
  2. MORPHINE [Concomitant]
     Active Substance: MORPHINE
  3. HYDROCODONE BITARTRATE AND ACETAMINOPHEN [Concomitant]
     Active Substance: ACETAMINOPHEN\HYDROCODONE BITARTRATE
  4. MIRTAZAPINE [Concomitant]
     Active Substance: MIRTAZAPINE
  5. MOVANTIK [Concomitant]
     Active Substance: NALOXEGOL OXALATE
  6. ENCLOMIPHENE CITRATE [Concomitant]
     Active Substance: ENCLOMIPHENE CITRATE
  7. ibutamoren mesylate [Concomitant]
  8. ANASTROZOLE [Concomitant]
     Active Substance: ANASTROZOLE
  9. TAMSULOSIN [Concomitant]
     Active Substance: TAMSULOSIN
  10. LUNESTA [Concomitant]
     Active Substance: ESZOPICLONE
  11. DEXTROAMPHET SACCHARAT, AMPHET ASPARTATE, DEXTROAMPHET SULFATE AND AMP [Concomitant]
     Active Substance: AMPHETAMINE ASPARTATE\AMPHETAMINE SULFATE\DEXTROAMPHETAMINE SACCHARATE\DEXTROAMPHETAMINE SULFATE
  12. METHYLPHENIDATE [Concomitant]
     Active Substance: METHYLPHENIDATE
  13. THEANINE [Concomitant]
     Active Substance: THEANINE
  14. HERBALS [Concomitant]
     Active Substance: HERBALS
  15. BASIL [Concomitant]
     Active Substance: BASIL
  16. VITAMIN B6 [Concomitant]
     Active Substance: PYRIDOXINE HYDROCHLORIDE
  17. turkey tail mushrooms [Concomitant]
  18. OMEGA 3 [Concomitant]
     Active Substance: CAPSAICIN
  19. L thyrosine [Concomitant]
  20. BIOTIN [Concomitant]
     Active Substance: BIOTIN
  21. VITAMIN D3 [Concomitant]
     Active Substance: CHOLECALCIFEROL
  22. FINASTERIDE [Concomitant]
     Active Substance: FINASTERIDE
  23. ZINC [Concomitant]
     Active Substance: ZINC
  24. MENAQUINONE 6 [Concomitant]
     Active Substance: MENAQUINONE 6
  25. VITAMIN C [Concomitant]
     Active Substance: ASCORBIC ACID
  26. MAGNESIUM [Concomitant]
     Active Substance: MAGNESIUM
  27. GLYCINE [Concomitant]
     Active Substance: GLYCINE
  28. MELATONIN [Concomitant]
     Active Substance: MELATONIN

REACTIONS (3)
  - Administration site pain [None]
  - Administration site discharge [None]
  - Product physical issue [None]

NARRATIVE: CASE EVENT DATE: 20220731
